FAERS Safety Report 5823226-9 (Version None)
Quarter: 2008Q3

REPORT INFORMATION
  Report Type: 
  Country: None (occurrence: None)
  Receive Date: 20080725
  Receipt Date: 20070720
  Transmission Date: 20090109
  Serious: No
  Sender: FDA-Public Use
  Company Number: A0666170A

PATIENT
  Sex: Female

DRUGS (2)
  1. DYAZIDE [Suspect]
     Indication: DRUG USE FOR UNKNOWN INDICATION
     Route: 048
  2. VERAPAMIL [Suspect]
     Dosage: 240MG TWICE PER DAY

REACTIONS (1)
  - STRESS [None]
